FAERS Safety Report 23357904 (Version 1)
Quarter: 2024Q1

REPORT INFORMATION
  Report Type: Other
  Country: US (occurrence: None)
  Receive Date: 20240102
  Receipt Date: 20240102
  Transmission Date: 20240410
  Serious: Yes (Other)
  Sender: FDA-Public Use
  Company Number: US-Nivagen-000078

PATIENT
  Age: 35 Year
  Sex: Male

DRUGS (6)
  1. TEMOZOLOMIDE [Suspect]
     Active Substance: TEMOZOLOMIDE
     Indication: Astrocytoma
     Dosage: 50 MG/M2 ONCE DAILY (QD)
  2. OLAPARIB [Suspect]
     Active Substance: OLAPARIB
     Indication: Astrocytoma
     Dosage: 150 MG, 3 TIMES / WEEK
  3. TEMOZOLOMIDE [Suspect]
     Active Substance: TEMOZOLOMIDE
     Indication: Astrocytoma
     Dosage: 75 MG/M2, ONCE DAILY (QD)
  4. TEMOZOLOMIDE [Suspect]
     Active Substance: TEMOZOLOMIDE
     Indication: Disease recurrence
     Dosage: 50 MG/M2
  5. TEMOZOLOMIDE [Suspect]
     Active Substance: TEMOZOLOMIDE
     Indication: Disease recurrence
     Dosage: 75 MG/M2, ONCE DAILY (QD)
  6. OLAPARIB [Suspect]
     Active Substance: OLAPARIB
     Indication: Disease recurrence
     Dosage: 150 MG, 3 TIMES / WEEK

REACTIONS (7)
  - Astrocytoma [Unknown]
  - Disease progression [Unknown]
  - Leukopenia [Unknown]
  - Constipation [Unknown]
  - Fatigue [Unknown]
  - Lymphopenia [Unknown]
  - Neutropenia [Unknown]
